FAERS Safety Report 25745452 (Version 1)
Quarter: 2025Q3

REPORT INFORMATION
  Report Type: Spontaneous
  Country: GB (occurrence: GB)
  Receive Date: 20250901
  Receipt Date: 20250901
  Transmission Date: 20251021
  Serious: Yes (Other)
  Sender: MDD OPERATIONS
  Company Number: GB-SUP-SUP202508-003255

PATIENT
  Age: 20 Year
  Sex: Female

DRUGS (4)
  1. TOPIRAMATE [Suspect]
     Active Substance: TOPIRAMATE
     Indication: Post-traumatic epilepsy
     Dosage: PER DAY
  2. CLOBAZAM [Suspect]
     Active Substance: CLOBAZAM
     Indication: Post-traumatic epilepsy
     Dosage: PER DAY
  3. CARBAMAZEPINE [Suspect]
     Active Substance: CARBAMAZEPINE
     Indication: Post-traumatic epilepsy
     Dosage: PER DAY
  4. PHENOBARBITAL [Suspect]
     Active Substance: PHENOBARBITAL
     Indication: Post-traumatic epilepsy
     Dosage: PER DAY

REACTIONS (1)
  - Hyponatraemia [Unknown]
